FAERS Safety Report 18924539 (Version 1)
Quarter: 2021Q1

REPORT INFORMATION
  Report Type: Spontaneous
  Country: LB (occurrence: LB)
  Receive Date: 20210223
  Receipt Date: 20210223
  Transmission Date: 20210420
  Serious: Yes (Death, Other)
  Sender: FDA-Public Use
  Company Number: LB-AMGEN-LBNSP2021028401

PATIENT
  Sex: Female

DRUGS (1)
  1. ENBREL [Suspect]
     Active Substance: ETANERCEPT
     Indication: PRODUCT USED FOR UNKNOWN INDICATION
     Dosage: 50 MILLIGRAM, QWK
     Route: 058
     Dates: start: 201905, end: 202102

REACTIONS (1)
  - Death [Fatal]

NARRATIVE: CASE EVENT DATE: 202102
